FAERS Safety Report 4825536-0 (Version None)
Quarter: 2005Q4

REPORT INFORMATION
  Report Type: 
  Country: None (occurrence: None)
  Receive Date: 20051111
  Receipt Date: 20050817
  Transmission Date: 20060501
  Serious: No
  Sender: FDA-Public Use
  Company Number: TAP2005Q01112

PATIENT
  Age: 50 Year
  Sex: Male
  Weight: 72.3 kg

DRUGS (4)
  1. AVODART [Suspect]
     Indication: PROSTATE CANCER
     Route: 048
     Dates: start: 20050401, end: 20050621
  2. LUPRON DEPOT-3 [Suspect]
     Indication: PROSTATE CANCER
     Dosage: 7.5MG MONTHLY
     Route: 030
     Dates: start: 20050526
  3. CASODEX [Suspect]
     Indication: PROSTATE CANCER
     Dosage: 50MG PER DAY
     Route: 048
     Dates: start: 20050405
  4. VITAMINS [Concomitant]

REACTIONS (3)
  - EJACULATION FAILURE [None]
  - FATIGUE [None]
  - IRRITABILITY [None]
